FAERS Safety Report 15962694 (Version 2)
Quarter: 2019Q1

REPORT INFORMATION
  Report Type: Spontaneous
  Country: TR (occurrence: TR)
  Receive Date: 20190214
  Receipt Date: 20190314
  Transmission Date: 20190417
  Serious: Yes (Other)
  Sender: FDA-Public Use
  Company Number: PHHY2019TR033101

PATIENT
  Age: 66 Year
  Sex: Female

DRUGS (4)
  1. FORADIL [Suspect]
     Active Substance: FORMOTEROL FUMARATE
     Indication: ASTHMA
     Dosage: UNK
     Route: 065
  2. MIFLONIDE [Suspect]
     Active Substance: BUDESONIDE
     Indication: ASTHMA
     Dosage: 200 UG, UNK
     Route: 065
  3. FORADIL COMBI FIX [Suspect]
     Active Substance: BUDESONIDE\FORMOTEROL FUMARATE
     Indication: ASTHMA
     Dosage: UNK
     Route: 065
  4. MIFLONIDE [Suspect]
     Active Substance: BUDESONIDE
     Dosage: 4 DF, QD (2 DOSES IN THE MORNING AND 2 DOSES IN THE EVENING)
     Route: 065

REACTIONS (3)
  - Dyspnoea [Recovered/Resolved]
  - Product supply issue [Unknown]
  - Drug ineffective [Recovered/Resolved]
